FAERS Safety Report 15703642 (Version 1)
Quarter: 2018Q4

REPORT INFORMATION
  Report Type: Spontaneous
  Country: US (occurrence: US)
  Receive Date: 20181210
  Receipt Date: 20181210
  Transmission Date: 20190205
  Serious: Yes (Death)
  Sender: FDA-Public Use
  Company Number: None

PATIENT
  Age: 72 Year
  Sex: Male

DRUGS (1)
  1. RITUXIMAB. [Suspect]
     Active Substance: RITUXIMAB
     Indication: MANTLE CELL LYMPHOMA
     Dates: start: 20170221, end: 20180618

REACTIONS (3)
  - Febrile bone marrow aplasia [None]
  - Neutropenia [None]
  - Pancytopenia [None]

NARRATIVE: CASE EVENT DATE: 20181130
